FAERS Safety Report 17549163 (Version 1)
Quarter: 2020Q1

REPORT INFORMATION
  Report Type: Report from Study
  Country: CO (occurrence: CO)
  Receive Date: 20200317
  Receipt Date: 20200317
  Transmission Date: 20200409
  Serious: Yes (Hospitalization)
  Sender: FDA-Public Use
  Company Number: CO-ROCHE-2544522

PATIENT
  Sex: Male

DRUGS (1)
  1. CELLCEPT [Suspect]
     Active Substance: MYCOPHENOLATE MOFETIL\MYCOPHENOLATE MOFETIL HYDROCHLORIDE
     Indication: TRANSPLANT
     Route: 065

REACTIONS (9)
  - Cholelithiasis [Recovering/Resolving]
  - Blood glucose increased [Unknown]
  - Gastritis [Unknown]
  - Blood pressure increased [Unknown]
  - Pancreatitis [Unknown]
  - Abdominal pain upper [Unknown]
  - Ill-defined disorder [Unknown]
  - Blood creatinine increased [Unknown]
  - Malaise [Unknown]
